FAERS Safety Report 25128131 (Version 1)
Quarter: 2025Q1

REPORT INFORMATION
  Report Type: Spontaneous
  Country: US (occurrence: US)
  Receive Date: 20250327
  Receipt Date: 20250327
  Transmission Date: 20250408
  Serious: No
  Sender: NOVARTIS
  Company Number: US-002147023-NVSC2025US045207

PATIENT
  Sex: Male

DRUGS (2)
  1. MEKINIST [Suspect]
     Active Substance: TRAMETINIB DIMETHYL SULFOXIDE
     Indication: Congenital anomaly
     Route: 048
     Dates: start: 202502, end: 20250318
  2. SIROLIMUS [Suspect]
     Active Substance: SIROLIMUS
     Indication: Product used for unknown indication
     Route: 065

REACTIONS (4)
  - Dry skin [Unknown]
  - Oropharyngeal pain [Unknown]
  - Restless legs syndrome [Unknown]
  - Product use in unapproved indication [Unknown]
